FAERS Safety Report 7373595-6 (Version None)
Quarter: 2011Q1

REPORT INFORMATION
  Report Type: 
  Country: None (occurrence: None)
  Receive Date: 20110325
  Receipt Date: 20110314
  Transmission Date: 20110831
  Serious: Yes (Life-Threatening)
  Sender: FDA-Public Use
  Company Number: DE-BAXTER-2011BH003702

PATIENT
  Age: 79 Year
  Sex: Male
  Weight: 80 kg

DRUGS (19)
  1. GAMMAGARD LIQUID [Suspect]
     Indication: SEPSIS
     Route: 042
     Dates: start: 20110204, end: 20110205
  2. ACETYLSALICYLIC ACID [Concomitant]
     Route: 048
     Dates: end: 20110127
  3. CLARITHROMYCIN [Concomitant]
     Indication: ARTHRITIS INFECTIVE
     Route: 048
     Dates: end: 20110204
  4. TILIDINE [Concomitant]
     Indication: PAIN
     Route: 048
  5. AMLODIPINE [Concomitant]
     Indication: HYPERTENSION
     Route: 048
  6. TAVANIC [Concomitant]
     Indication: ARTHRITIS INFECTIVE
     Route: 048
     Dates: end: 20110204
  7. METAMIZOLE SODIUM [Concomitant]
     Indication: PAIN
     Route: 048
     Dates: start: 20110204
  8. HEPARIN [Concomitant]
     Indication: THROMBOSIS PROPHYLAXIS
     Route: 058
     Dates: end: 20110204
  9. CIPROFLOXACIN [Concomitant]
     Indication: SEPSIS
     Route: 042
     Dates: start: 20110204
  10. VANCOMYCIN [Concomitant]
     Indication: SEPSIS
     Route: 042
     Dates: start: 20110204
  11. NITROLINGUAL [Concomitant]
     Indication: HYPERTENSION
     Route: 042
     Dates: start: 20110204
  12. ZIENAM [Concomitant]
     Indication: SEPSIS
     Route: 042
     Dates: start: 20110204
  13. GAMMAGARD LIQUID [Suspect]
     Indication: BLOOD IMMUNOGLOBULIN G DECREASED
     Route: 042
     Dates: start: 20110204, end: 20110205
  14. PANTOPRAZOLE [Concomitant]
     Indication: REFLUX OESOPHAGITIS
     Route: 048
  15. LEVOTHYROXINE SODIUM [Concomitant]
     Indication: THYROIDECTOMY
     Route: 048
  16. CALCIUM [Concomitant]
     Indication: OSTEITIS DEFORMANS
     Route: 048
     Dates: end: 20110204
  17. LISINOPRIL [Concomitant]
     Indication: HYPERTENSION
     Route: 048
  18. CALCIUM WITH VITAMIN D [Concomitant]
     Dates: start: 20110127
  19. ZOMETA [Concomitant]
     Dates: start: 20110127

REACTIONS (4)
  - BRONCHOSPASM [None]
  - ERYTHEMA [None]
  - OXYGEN SATURATION DECREASED [None]
  - DRUG INTOLERANCE [None]
